FAERS Safety Report 22330359 (Version 3)
Quarter: 2023Q2

REPORT INFORMATION
  Report Type: Spontaneous
  Country: AU (occurrence: AU)
  Receive Date: 20230517
  Receipt Date: 20230612
  Transmission Date: 20230722
  Serious: No
  Sender: FDA-Public Use
  Company Number: AU-BAYER-2023A064679

PATIENT
  Age: 67 Year
  Sex: Female

DRUGS (3)
  1. EYLEA [Suspect]
     Active Substance: AFLIBERCEPT
     Indication: Choroidal neovascularisation
     Dosage: UNK UNK, ONCE, SOLUTION FOR INJECTION, STRENGTH: 40MG/ML
  2. EYLEA [Suspect]
     Active Substance: AFLIBERCEPT
     Indication: Cystoid macular oedema
  3. EYLEA [Suspect]
     Active Substance: AFLIBERCEPT
     Indication: Eye inflammation

REACTIONS (1)
  - Off label use [Unknown]
